FAERS Safety Report 10915808 (Version 1)
Quarter: 2015Q1

REPORT INFORMATION
  Report Type: Spontaneous
  Country: US (occurrence: None)
  Receive Date: 20150311
  Receipt Date: 20150311
  Transmission Date: 20150721
  Serious: Yes (Other)
  Sender: FDA-Public Use
  Company Number: None

PATIENT
  Age: 50 Year
  Sex: Female
  Weight: 82.56 kg

DRUGS (5)
  1. DEPO-PROVERA [Suspect]
     Active Substance: MEDROXYPROGESTERONE ACETATE
     Indication: UTERINE HAEMORRHAGE
     Dosage: IN ARM
     Dates: start: 201401, end: 201408
  2. RHINOCORT [Concomitant]
     Active Substance: BUDESONIDE
  3. VIT. VD [Concomitant]
  4. VITAMIN C [Concomitant]
     Active Substance: ASCORBIC ACID
  5. MULTIVITAMIN [Concomitant]
     Active Substance: VITAMINS

REACTIONS (3)
  - Chest pain [None]
  - Nightmare [None]
  - Abdominal pain upper [None]

NARRATIVE: CASE EVENT DATE: 201408
